FAERS Safety Report 22089697 (Version 1)
Quarter: 2023Q1

REPORT INFORMATION
  Report Type: Spontaneous
  Country: IN (occurrence: IN)
  Receive Date: 20230313
  Receipt Date: 20230313
  Transmission Date: 20230418
  Serious: Yes (Hospitalization)
  Sender: FDA-Public Use
  Company Number: IN-SCILEX PHARMACEUTICALS INC.-2023SCX00013

PATIENT
  Age: 30 Year
  Sex: Female

DRUGS (2)
  1. LIDOCAINE [Suspect]
     Active Substance: LIDOCAINE
     Indication: Diagnostic procedure
     Dosage: 15 ML
     Route: 037
  2. IOHEXOL [Concomitant]
     Active Substance: IOHEXOL
     Indication: Diagnostic procedure
     Dosage: 15 ML
     Route: 037

REACTIONS (2)
  - Paraplegia [Recovered/Resolved]
  - Wrong product administered [Recovered/Resolved]
